FAERS Safety Report 8833267 (Version 1)
Quarter: 2012Q4

REPORT INFORMATION
  Report Type: Spontaneous
  Country: US (occurrence: None)
  Receive Date: 20121009
  Receipt Date: 20121009
  Transmission Date: 20130627
  Serious: Yes (Hospitalization)
  Sender: FDA-Public Use
  Company Number: None

PATIENT
  Sex: Female

DRUGS (1)
  1. RECLAIM ANTI-AGING DAY CREAM SPF 15 % [Suspect]
     Dosage: dermal daily
     Dates: start: 20110902, end: 20110903

REACTIONS (2)
  - Cellulitis [None]
  - Rash [None]
